FAERS Safety Report 8166930-2 (Version None)
Quarter: 2012Q1

REPORT INFORMATION
  Report Type: 
  Country: None (occurrence: None)
  Receive Date: 20120227
  Receipt Date: 20120222
  Transmission Date: 20120608
  Serious: Yes (Life-Threatening)
  Sender: FDA-Public Use
  Company Number: GB-ROCHE-1042179

PATIENT
  Age: 51 Year
  Sex: Female
  Weight: 60 kg

DRUGS (10)
  1. AMLODIPINE [Concomitant]
  2. RITUXIMAB [Suspect]
     Indication: RHEUMATOID ARTHRITIS
     Route: 042
     Dates: start: 20091001, end: 20110501
  3. LEFLUNOMIDE [Concomitant]
  4. SPIRIVA [Concomitant]
  5. CALCIUM CARBONATE [Concomitant]
  6. METHOTREXATE [Concomitant]
     Route: 048
  7. RAMIPRIL [Concomitant]
  8. VENTOLIN [Concomitant]
  9. NEXIUM [Concomitant]
  10. INFLIXIMAB [Concomitant]
     Indication: ALPHA TUMOUR NECROSIS FACTOR INCREASED

REACTIONS (1)
  - ENDOMETRIAL CANCER STAGE III [None]
